FAERS Safety Report 9372451 (Version 1)
Quarter: 2013Q2

REPORT INFORMATION
  Report Type: Spontaneous
  Country: AR (occurrence: AR)
  Receive Date: 20130627
  Receipt Date: 20130627
  Transmission Date: 20140414
  Serious: Yes (Death, Hospitalization)
  Sender: FDA-Public Use
  Company Number: AR-ACTELION-A-CH2013-84803

PATIENT
  Age: 63 Year
  Sex: Male

DRUGS (2)
  1. ZAVESCA [Suspect]
     Indication: NIEMANN-PICK DISEASE
     Dosage: UNK
     Route: 048
     Dates: start: 201209
  2. LEVODOPA [Concomitant]

REACTIONS (6)
  - Nosocomial infection [Fatal]
  - Urinary tract infection [Fatal]
  - Gastrostomy [Unknown]
  - General physical health deterioration [Unknown]
  - Weight decreased [Unknown]
  - Pyrexia [Fatal]
